FAERS Safety Report 17925628 (Version 4)
Quarter: 2020Q3

REPORT INFORMATION
  Report Type: Report from Study
  Country: CA (occurrence: CA)
  Receive Date: 20200622
  Receipt Date: 20200810
  Transmission Date: 20201103
  Serious: Yes (Hospitalization)
  Sender: FDA-Public Use
  Company Number: CA-BIOGEN-2018BI00591997

PATIENT
  Age: 16 Year
  Sex: Female

DRUGS (6)
  1. TYLENOL [Concomitant]
     Active Substance: ACETAMINOPHEN
     Indication: PRODUCT USED FOR UNKNOWN INDICATION
     Route: 065
  2. TYSABRI [Suspect]
     Active Substance: NATALIZUMAB
     Indication: MULTIPLE SCLEROSIS
     Dosage: INFUSED OVER 1 HOUR
     Route: 050
     Dates: start: 20160104
  3. PANTOLOC [Concomitant]
     Active Substance: PANTOPRAZOLE SODIUM
     Indication: PRODUCT USED FOR UNKNOWN INDICATION
     Route: 065
  4. TYSABRI [Suspect]
     Active Substance: NATALIZUMAB
     Route: 042
  5. TYSABRI [Suspect]
     Active Substance: NATALIZUMAB
     Dosage: INFUSED OVER 1 HOUR
     Route: 042
     Dates: start: 20160404
  6. TYSABRI [Suspect]
     Active Substance: NATALIZUMAB
     Route: 042

REACTIONS (13)
  - Eye haemorrhage [Unknown]
  - Uterine pain [Not Recovered/Not Resolved]
  - Infected cyst [Unknown]
  - Retinal disorder [Unknown]
  - Immune system disorder [Unknown]
  - Product dose omission issue [Unknown]
  - Cyst [Unknown]
  - Weight increased [Unknown]
  - Off label use [Not Recovered/Not Resolved]
  - Hormone level abnormal [Unknown]
  - Ovarian cyst [Unknown]
  - Obesity [Unknown]
  - Eye inflammation [Unknown]

NARRATIVE: CASE EVENT DATE: 201806
